FAERS Safety Report 5533878-9 (Version None)
Quarter: 2007Q4

REPORT INFORMATION
  Report Type: 
  Country: None (occurrence: None)
  Receive Date: 20071129
  Receipt Date: 20071119
  Transmission Date: 20080405
  Serious: Yes (Hospitalization, Other)
  Sender: FDA-Public Use
  Company Number: 2007RL000521

PATIENT
  Age: 43 Year
  Sex: Male

DRUGS (4)
  1. PROPAFENONE HCL [Suspect]
     Indication: ATRIAL FIBRILLATION
     Dosage: 2 DF; QD; PO, 2 DF; X1; IV
     Route: 048
     Dates: start: 20070719, end: 20070818
  2. PROPAFENONE HCL [Suspect]
     Indication: ATRIAL FIBRILLATION
     Dosage: 2 DF; QD; PO, 2 DF; X1; IV
     Route: 048
     Dates: start: 20070818, end: 20070818
  3. WARFARIN SODIUM [Suspect]
     Indication: ATRIAL FIBRILLATION
     Dosage: 1 DF; PO
     Route: 048
     Dates: start: 20061001, end: 20070818
  4. PRITOR [Concomitant]

REACTIONS (8)
  - ATRIAL FIBRILLATION [None]
  - BRAIN OEDEMA [None]
  - CEREBRAL HAEMORRHAGE [None]
  - DRUG INTERACTION [None]
  - HEADACHE [None]
  - INTERNATIONAL NORMALISED RATIO INCREASED [None]
  - SYNCOPE [None]
  - TRAUMATIC BRAIN INJURY [None]
